FAERS Safety Report 19074623 (Version 2)
Quarter: 2021Q2

REPORT INFORMATION
  Report Type: Report from Study
  Country: DE (occurrence: DE)
  Receive Date: 20210330
  Receipt Date: 20210401
  Transmission Date: 20210717
  Serious: Yes (Death, Other)
  Sender: FDA-Public Use
  Company Number: DE-BRISTOL-MYERS SQUIBB COMPANY-BMS-2021-030957

PATIENT
  Age: 70 Year
  Sex: Male

DRUGS (2)
  1. IPILIMUMAB [Suspect]
     Active Substance: IPILIMUMAB
     Indication: MALIGNANT MELANOMA
     Dosage: 288 MILLIGRAM, Q3WK
     Route: 042
     Dates: start: 20190409, end: 20190611
  2. NIVOLUMAB [Suspect]
     Active Substance: NIVOLUMAB
     Indication: MALIGNANT MELANOMA
     Dosage: 96.0 MILLIGRAM
     Route: 042
     Dates: start: 20190409, end: 20190611

REACTIONS (1)
  - Death [Fatal]

NARRATIVE: CASE EVENT DATE: 20200729
